FAERS Safety Report 16258774 (Version 1)
Quarter: 2019Q2

REPORT INFORMATION
  Report Type: Spontaneous
  Country: US (occurrence: US)
  Receive Date: 20190326
  Receipt Date: 20190326
  Transmission Date: 20190711
  Serious: Yes (Hospitalization)
  Sender: FDA-Public Use
  Company Number: None

PATIENT
  Age: 77 Year
  Sex: Male
  Weight: 97.98 kg

DRUGS (1)
  1. AMIODARONE [Suspect]
     Active Substance: AMIODARONE
     Indication: ATRIAL FIBRILLATION
     Route: 048
     Dates: end: 20180128

REACTIONS (5)
  - Dizziness [None]
  - Chest pain [None]
  - Headache [None]
  - Bradycardia [None]
  - Conduction disorder [None]

NARRATIVE: CASE EVENT DATE: 20190128
